FAERS Safety Report 9401603 (Version 1)
Quarter: 2013Q3

REPORT INFORMATION
  Report Type: Spontaneous
  Country: CH (occurrence: CH)
  Receive Date: 20130716
  Receipt Date: 20130716
  Transmission Date: 20140515
  Serious: Yes (Hospitalization, Other)
  Sender: FDA-Public Use
  Company Number: CH-009507513-1307CHE005567

PATIENT
  Age: 50 Year
  Sex: Male

DRUGS (14)
  1. REMERON [Suspect]
     Dosage: 30 MG, QD
     Route: 048
     Dates: end: 2013
  2. RENITEN-MITE [Suspect]
     Dosage: 5 MG, QD
     Route: 048
     Dates: start: 20130419
  3. PREDNISONE [Suspect]
     Dosage: 20 MG, QD
     Route: 048
  4. TOREM [Suspect]
     Dosage: 100 MG, QD
     Route: 048
  5. SELIPRAN [Suspect]
     Dosage: 40 MG, QD
     Route: 048
     Dates: end: 2013
  6. ALDACTONE TABLETS [Concomitant]
     Dosage: 25 MG, BID
     Route: 048
  7. ASPIRIN CARDIO [Concomitant]
     Dosage: 100 MG, QD
     Route: 048
  8. BENOCTEN [Concomitant]
     Route: 048
  9. CONCOR [Concomitant]
     Dosage: 2.5 MG, QD
     Route: 048
  10. DAFALGAN [Concomitant]
  11. MARCOUMAR [Concomitant]
     Route: 048
  12. METOLAZONE [Concomitant]
     Dosage: 5 MG, QD
     Route: 048
     Dates: start: 20130404
  13. PANTOZOL [Concomitant]
     Dosage: 40 MG, QD
     Route: 048
  14. ZYLORIC [Concomitant]
     Dosage: 300 MG, QD
     Route: 048
     Dates: start: 20130415

REACTIONS (1)
  - Pancreatitis acute [Recovering/Resolving]
